FAERS Safety Report 21915977 (Version 2)
Quarter: 2025Q1

REPORT INFORMATION
  Report Type: Spontaneous
  Country: US (occurrence: US)
  Receive Date: 20230126
  Receipt Date: 20250327
  Transmission Date: 20250408
  Serious: Yes (Other)
  Sender: PFIZER
  Company Number: US-PFIZER INC-PV202300015979

PATIENT
  Age: 59 Year
  Sex: Male

DRUGS (5)
  1. XELJANZ XR [Suspect]
     Active Substance: TOFACITINIB CITRATE
  2. HYDROCODONE [Concomitant]
     Active Substance: HYDROCODONE
  3. POTASSIUM [Concomitant]
     Active Substance: POTASSIUM
  4. PREDNISONE [Concomitant]
     Active Substance: PREDNISONE
  5. OMEPRAZOLE [Concomitant]
     Active Substance: OMEPRAZOLE

REACTIONS (2)
  - Crohn^s disease [Unknown]
  - Coeliac disease [Unknown]
